FAERS Safety Report 10149039 (Version 1)
Quarter: 2014Q2

REPORT INFORMATION
  Report Type: Spontaneous
  Country: US (occurrence: US)
  Receive Date: 20140502
  Receipt Date: 20140502
  Transmission Date: 20141212
  Serious: No
  Sender: FDA-Public Use
  Company Number: US-JNJFOC-20140414855

PATIENT
  Age: 41 Year
  Sex: Female
  Weight: 64.41 kg

DRUGS (6)
  1. DURAGESIC [Suspect]
     Indication: PAIN
     Route: 062
     Dates: start: 20140417
  2. LYRICA [Concomitant]
     Indication: NEURALGIA
     Route: 048
     Dates: start: 2013
  3. HCTZ [Concomitant]
     Indication: HYPERTENSION
     Route: 048
     Dates: start: 2009
  4. NORVASC [Concomitant]
     Indication: HYPERTENSION
     Route: 048
     Dates: start: 2009
  5. ENALAPRIL [Concomitant]
     Indication: HYPERTENSION
     Route: 048
     Dates: start: 2010
  6. EFFEXOR [Concomitant]
     Indication: ANTIDEPRESSANT THERAPY
     Route: 048
     Dates: start: 2014

REACTIONS (2)
  - Drug dose omission [Recovered/Resolved]
  - Product quality issue [Unknown]
